FAERS Safety Report 19253250 (Version 1)
Quarter: 2021Q2

REPORT INFORMATION
  Report Type: Spontaneous
  Country: GB (occurrence: GB)
  Receive Date: 20210513
  Receipt Date: 20210513
  Transmission Date: 20210717
  Serious: Yes (Disabling)
  Sender: FDA-Public Use
  Company Number: GB-TEVA-2021-GB-1910585

PATIENT
  Age: 80 Year
  Sex: Female
  Weight: 64 kg

DRUGS (2)
  1. WARFARIN [Concomitant]
     Active Substance: WARFARIN
     Indication: ATRIAL FIBRILLATION
     Dates: start: 200611
  2. BISOPROLOL [Suspect]
     Active Substance: BISOPROLOL
     Route: 065

REACTIONS (4)
  - Atrial flutter [Unknown]
  - Atrial fibrillation [Unknown]
  - Atrial flutter [Recovered/Resolved]
  - Neck pain [Unknown]

NARRATIVE: CASE EVENT DATE: 20210205
